FAERS Safety Report 6751052-5 (Version None)
Quarter: 2010Q2

REPORT INFORMATION
  Report Type: 
  Country: None (occurrence: None)
  Receive Date: 20100602
  Receipt Date: 20100526
  Transmission Date: 20101027
  Serious: Yes (Hospitalization)
  Sender: FDA-Public Use
  Company Number: DE-JNJFOC-20100406754

PATIENT
  Sex: Female

DRUGS (8)
  1. DURAGESIC-100 [Suspect]
     Indication: DRUG USE FOR UNKNOWN INDICATION
     Route: 062
     Dates: start: 20080101, end: 20100124
  2. APIXABAN [Suspect]
     Indication: THROMBOSIS PROPHYLAXIS
     Route: 048
     Dates: start: 20090811
  3. APIXABAN [Suspect]
     Route: 048
     Dates: start: 20090811
  4. WARFARIN SODIUM [Suspect]
     Indication: THROMBOSIS PROPHYLAXIS
     Route: 048
     Dates: start: 20090811
  5. WARFARIN SODIUM [Suspect]
     Route: 048
     Dates: start: 20090811
  6. PLACEBO [Suspect]
     Indication: THROMBOSIS PROPHYLAXIS
     Route: 048
     Dates: start: 20090811
  7. PLACEBO [Suspect]
     Route: 048
     Dates: start: 20090811
  8. MORPHINE TARTRATE [Suspect]
     Indication: DRUG USE FOR UNKNOWN INDICATION
     Route: 065
     Dates: start: 20080101, end: 20100124

REACTIONS (4)
  - BACTERIAL DISEASE CARRIER [None]
  - OVERDOSE [None]
  - SOMNOLENCE [None]
  - SYNCOPE [None]
